FAERS Safety Report 19084549 (Version 1)
Quarter: 2021Q2

REPORT INFORMATION
  Report Type: Spontaneous
  Country: US (occurrence: US)
  Receive Date: 20210401
  Receipt Date: 20210401
  Transmission Date: 20210717
  Serious: No
  Sender: FDA-Public Use
  Company Number: US-IBSA PHARMA-2020-IBS-00735

PATIENT
  Age: 101 Year
  Weight: 62.58 kg

DRUGS (2)
  1. FLECTOR [Suspect]
     Active Substance: DICLOFENAC EPOLAMINE
     Indication: OSTEOARTHRITIS
     Dosage: UNK UNK, 1XDAY
     Route: 061
  2. FLECTOR [Suspect]
     Active Substance: DICLOFENAC EPOLAMINE
     Indication: ARTHRALGIA
     Dosage: 1 PATCH EVERY 12 HOURS
     Route: 061

REACTIONS (3)
  - Myalgia [Unknown]
  - Muscular weakness [Unknown]
  - Hypoacusis [Unknown]
